FAERS Safety Report 24159316 (Version 1)
Quarter: 2024Q3

REPORT INFORMATION
  Report Type: Spontaneous
  Country: GB (occurrence: GB)
  Receive Date: 20240731
  Receipt Date: 20240731
  Transmission Date: 20241016
  Serious: Yes (Other)
  Sender: MYLAN
  Company Number: GB-MYLANLABS-2024M1063550

PATIENT
  Sex: Female

DRUGS (2)
  1. CLOZARIL [Suspect]
     Active Substance: CLOZAPINE
     Indication: Schizophrenia
     Dosage: 200 MILLIGRAM, QD (NOCTE)
     Route: 048
     Dates: start: 20240611
  2. CLOZARIL [Suspect]
     Active Substance: CLOZAPINE
     Dosage: 250 MILLIGRAM, QD (NOCTE)
     Route: 048
     Dates: start: 20240716

REACTIONS (6)
  - Alanine aminotransferase increased [Recovered/Resolved]
  - Antipsychotic drug level decreased [Unknown]
  - Transaminases abnormal [Unknown]
  - Blood alkaline phosphatase increased [Not Recovered/Not Resolved]
  - Eosinophilia [Unknown]
  - Treatment noncompliance [Unknown]

NARRATIVE: CASE EVENT DATE: 20240705
